FAERS Safety Report 18219890 (Version 1)
Quarter: 2020Q3

REPORT INFORMATION
  Report Type: Spontaneous
  Country: US (occurrence: US)
  Receive Date: 20200901
  Receipt Date: 20200901
  Transmission Date: 20201103
  Serious: No
  Sender: FDA-Public Use
  Company Number: US-PRINSTON PHARMACEUTICAL INC.-2020PRN00094

PATIENT
  Age: 75 Year
  Sex: Female
  Weight: 70.3 kg

DRUGS (5)
  1. ESCITALOPRAM [Suspect]
     Active Substance: ESCITALOPRAM OXALATE
     Indication: DRUG INTOLERANCE
  2. UNSPECIFIED BLOOD THINNER [Concomitant]
     Active Substance: UNSPECIFIED INGREDIENT
  3. UNSPECIFIED PRESSURE MEDICATION [Concomitant]
  4. UNSPECIFIED STATIN MEDICATION [Concomitant]
  5. ESCITALOPRAM [Suspect]
     Active Substance: ESCITALOPRAM OXALATE
     Indication: ILL-DEFINED DISORDER
     Dosage: 10 MG, 1X/DAY
     Route: 048
     Dates: start: 2016

REACTIONS (3)
  - Abnormal dreams [Not Recovered/Not Resolved]
  - Drug ineffective for unapproved indication [Not Recovered/Not Resolved]
  - Dry mouth [Not Recovered/Not Resolved]

NARRATIVE: CASE EVENT DATE: 2016
